FAERS Safety Report 12045934 (Version 1)
Quarter: 2016Q1

REPORT INFORMATION
  Report Type: Report from Study
  Country: US (occurrence: US)
  Receive Date: 20160209
  Receipt Date: 20160209
  Transmission Date: 20160526
  Serious: Yes (Hospitalization, Other)
  Sender: FDA-Public Use
  Company Number: US-AMGEN-USASL2016013752

PATIENT
  Age: 76 Year
  Sex: Female

DRUGS (8)
  1. ENBREL [Suspect]
     Active Substance: ETANERCEPT
     Indication: RHEUMATOID ARTHRITIS
     Dosage: UNK UNK, QWK
     Route: 065
  2. ATORVASTATIN [Concomitant]
     Active Substance: ATORVASTATIN
     Dosage: 40 MG, EVERY NIGHT BEFORE BED
  3. ASPIRIN                            /00002701/ [Concomitant]
     Active Substance: ASPIRIN
     Dosage: 81 MG, QD
  4. LISINOPRIL. [Concomitant]
     Active Substance: LISINOPRIL
     Dosage: 2.5 MG, QD
  5. FOLIC ACID. [Concomitant]
     Active Substance: FOLIC ACID
  6. NITRO                              /00003201/ [Concomitant]
     Dosage: UNK, 0.4 MG UP TO 3 DOSES AS NEEDED AND IF NEED THAT MANY
  7. METOPROLOL. [Concomitant]
     Active Substance: METOPROLOL
     Dosage: UNK, HALF TABLET 2 TIMES DAILY, FOR 25MG TOTAL
  8. BRILINTA [Concomitant]
     Active Substance: TICAGRELOR
     Dosage: 90 MG, BID

REACTIONS (8)
  - Dyspnoea [Unknown]
  - Panic attack [Unknown]
  - Memory impairment [Unknown]
  - Injection site swelling [Unknown]
  - Myocardial infarction [Unknown]
  - Injection site erythema [Unknown]
  - Device issue [Unknown]
  - Hearing aid user [Unknown]

NARRATIVE: CASE EVENT DATE: 2015
